FAERS Safety Report 7324843-X (Version None)
Quarter: 2011Q1

REPORT INFORMATION
  Report Type: 
  Country: None (occurrence: None)
  Receive Date: 20110301
  Receipt Date: 20110217
  Transmission Date: 20110831
  Serious: Yes (Hospitalization)
  Sender: FDA-Public Use
  Company Number: US-B.I. PHARMACEUTICALS,INC./RIDGEFIELD-2011-BP-03556BP

PATIENT
  Sex: Female

DRUGS (1)
  1. PRADAXA [Suspect]
     Indication: ATRIAL FIBRILLATION
     Dosage: 300 MG
     Route: 048
     Dates: start: 20110122

REACTIONS (11)
  - ABDOMINAL PAIN UPPER [None]
  - DYSPEPSIA [None]
  - MELAENA [None]
  - CHEST DISCOMFORT [None]
  - HYPERHIDROSIS [None]
  - DIABETES MELLITUS [None]
  - ASTHENIA [None]
  - CHILLS [None]
  - PNEUMONIA [None]
  - DYSPNOEA [None]
  - ANAEMIA [None]
